FAERS Safety Report 18052564 (Version 1)
Quarter: 2020Q3

REPORT INFORMATION
  Report Type: Spontaneous
  Country: US (occurrence: US)
  Receive Date: 20200722
  Receipt Date: 20200722
  Transmission Date: 20201103
  Serious: No
  Sender: FDA-Public Use
  Company Number: US-BRISTOL-MYERS SQUIBB COMPANY-BMS-2020-058277

PATIENT
  Sex: Male
  Weight: 92.9 kg

DRUGS (3)
  1. LIPITOR [Concomitant]
     Active Substance: ATORVASTATIN CALCIUM
     Indication: PRODUCT USED FOR UNKNOWN INDICATION
     Dosage: 20 MILLIGRAM
     Route: 065
  2. ELIQUIS [Suspect]
     Active Substance: APIXABAN
     Indication: DIZZINESS
     Dosage: UNK, BID
     Route: 048
     Dates: start: 202001
  3. METOPROLOL. [Concomitant]
     Active Substance: METOPROLOL
     Indication: DIZZINESS
     Dosage: UNK
     Route: 065
     Dates: start: 202001

REACTIONS (1)
  - Intentional product use issue [Unknown]
